FAERS Safety Report 8089372-7 (Version None)
Quarter: 2012Q1

REPORT INFORMATION
  Report Type: 
  Country: None (occurrence: None)
  Receive Date: 20120128
  Receipt Date: 20110711
  Transmission Date: 20120608
  Serious: No
  Sender: FDA-Public Use
  Company Number: US-ABBOTT-11P-163-0838288-00

PATIENT
  Sex: Female
  Weight: 61.29 kg

DRUGS (2)
  1. ORTHO-NOVUM [Concomitant]
     Indication: CONTRACEPTION
     Dates: start: 19940101
  2. HUMIRA [Suspect]
     Indication: PSORIASIS

REACTIONS (7)
  - NASAL TURBINATE HYPERTROPHY [None]
  - RHINORRHOEA [None]
  - NASAL SEPTUM DEVIATION [None]
  - NASAL OBSTRUCTION [None]
  - NASAL INFLAMMATION [None]
  - DYSPNOEA [None]
  - SINUSITIS [None]
